FAERS Safety Report 9758960 (Version 1)
Quarter: 2013Q4

REPORT INFORMATION
  Report Type: Spontaneous
  Country: US (occurrence: None)
  Receive Date: 20131213
  Receipt Date: 20131213
  Transmission Date: 20140711
  Serious: Yes (Other)
  Sender: FDA-Public Use
  Company Number: None

PATIENT
  Age: 65 Year
  Sex: Male
  Weight: 80.4 kg

DRUGS (4)
  1. BENDAMUSTINE [Suspect]
  2. ALLOPURINOL 300 MG [Suspect]
  3. ACYCLOVIR [Concomitant]
  4. OXYCODONE [Concomitant]

REACTIONS (4)
  - Rash generalised [None]
  - Mouth ulceration [None]
  - Rash [None]
  - Drug interaction [None]
